FAERS Safety Report 8601415-8 (Version None)
Quarter: 2012Q3

REPORT INFORMATION
  Report Type: 
  Country: None (occurrence: None)
  Receive Date: 20120817
  Receipt Date: 20120814
  Transmission Date: 20120928
  Serious: Yes (Other)
  Sender: FDA-Public Use
  Company Number: PHEH2009US00900

PATIENT
  Sex: Male
  Weight: 91.791 kg

DRUGS (38)
  1. NAPROSYN [Concomitant]
  2. LYRICA [Concomitant]
  3. ATENOLOL [Concomitant]
     Dosage: 25 MG,
     Dates: start: 20000401
  4. WARFARIN [Concomitant]
     Indication: ANTICOAGULANT THERAPY
     Dosage: 2 MG, QHS
     Dates: start: 20070608
  5. DEXAMETHASONE [Concomitant]
     Indication: MULTIPLE MYELOMA
     Dosage: 4 MG, 10 TABS Q SAT
     Dates: start: 20070607
  6. COMPAZINE [Concomitant]
  7. PERCOCET [Concomitant]
  8. NITROGLYCERIN [Concomitant]
  9. DICLOFENAC [Concomitant]
  10. CHEMOTHERAPEUTICS NOS [Concomitant]
     Dates: start: 20060401
  11. PRAVACHOL [Concomitant]
     Dates: start: 20000101, end: 20060101
  12. TRIMETHOPRIM [Concomitant]
     Indication: ANTIBIOTIC PROPHYLAXIS
     Dosage: 1 DF, BID
     Dates: start: 20070622
  13. PLAVIX [Concomitant]
  14. DECADRON PHOSPHATE [Concomitant]
  15. PNEUMOVAX 23 [Concomitant]
  16. VELCADE [Concomitant]
  17. THALIDOMIDE [Concomitant]
     Dosage: 200 MG, QD
     Dates: start: 20030401, end: 20060601
  18. REVLIMID [Concomitant]
     Indication: MULTIPLE MYELOMA
     Dosage: 25 MG, QW3
     Dates: start: 20060701
  19. CLINDAMYCIN [Concomitant]
     Dosage: 300 MG, TID
     Dates: start: 20061201
  20. VITAMIN B6 [Concomitant]
     Indication: NEUROPATHY PERIPHERAL
     Dates: start: 20060501
  21. PREVACID [Concomitant]
  22. LIPITOR [Concomitant]
     Dates: start: 20060101
  23. MORPHINE [Concomitant]
     Dates: start: 20070101, end: 20070101
  24. OXYCODONE HCL [Concomitant]
     Dosage: 40 MG, PRN
     Dates: start: 20070101
  25. ASPIRIN [Concomitant]
     Indication: ANTICOAGULANT THERAPY
     Dosage: 325 MG,
     Dates: start: 20001101
  26. COUMADIN [Concomitant]
  27. ELAVIL [Concomitant]
  28. TYLENOL [Concomitant]
  29. OMEPRAZOLE [Concomitant]
  30. XANAX [Concomitant]
  31. LOVASTATIN [Concomitant]
  32. LASIX [Concomitant]
  33. PENICILLIN [Concomitant]
  34. CYCLOPHOSPHAMIDE [Concomitant]
  35. ZOMETA [Suspect]
     Indication: MULTIPLE MYELOMA
     Dosage: 4 MG, QMO
     Route: 042
     Dates: start: 20030501, end: 20061101
  36. VITAMINS NOS [Concomitant]
     Dates: start: 20030101
  37. OXYCODONE HCL [Concomitant]
     Indication: PAIN
     Dates: start: 20070101
  38. ADVIL [Concomitant]

REACTIONS (43)
  - CATARACT [None]
  - TOOTH LOSS [None]
  - OPEN WOUND [None]
  - OSTEOMYELITIS [None]
  - PARAESTHESIA [None]
  - DYSPHAGIA [None]
  - SWELLING FACE [None]
  - ANHEDONIA [None]
  - ANAEMIA [None]
  - BONE PAIN [None]
  - RECTAL HAEMORRHAGE [None]
  - LEUKOPENIA [None]
  - OSTEONECROSIS OF JAW [None]
  - SWELLING [None]
  - INJURY [None]
  - HYPOAESTHESIA [None]
  - BURSITIS [None]
  - PULMONARY EMBOLISM [None]
  - DEEP VEIN THROMBOSIS [None]
  - FASCIITIS [None]
  - BLOOD PRESSURE INCREASED [None]
  - CHEST PAIN [None]
  - HYPERCHOLESTEROLAEMIA [None]
  - MASTICATION DISORDER [None]
  - PAIN [None]
  - PAIN IN JAW [None]
  - HAEMORRHOIDS [None]
  - OEDEMA [None]
  - HYPERLIPIDAEMIA [None]
  - GASTROOESOPHAGEAL REFLUX DISEASE [None]
  - DEPRESSED MOOD [None]
  - SLEEP DISORDER [None]
  - MENTAL STATUS CHANGES [None]
  - BLOODY DISCHARGE [None]
  - ANXIETY [None]
  - NEUROPATHY PERIPHERAL [None]
  - OSTEOLYSIS [None]
  - DYSPEPSIA [None]
  - NECK PAIN [None]
  - ABNORMAL BEHAVIOUR [None]
  - INFECTION [None]
  - BONE DISORDER [None]
  - ARTERIAL DISORDER [None]
